FAERS Safety Report 10272933 (Version 1)
Quarter: 2014Q1

REPORT INFORMATION
  Report Type: Spontaneous
  Country: US (occurrence: None)
  Receive Date: 20140306
  Receipt Date: 20140306
  Transmission Date: 20141002
  Serious: Yes (Other)
  Sender: FDA-Public Use
  Company Number: 163-21880-13061632

PATIENT
  Age: 79 Year
  Sex: Female
  Weight: 81.65 kg

DRUGS (7)
  1. REVLIMID (LENALIDOMIDE) (5 MILLIGRAM, CAPSULES) [Suspect]
     Indication: MYELOFIBROSIS
     Dosage: 5 MG, 21 IN 28 D, PO
     Route: 048
     Dates: start: 20130206
  2. JAKAFI (RUXOLITINIB) (TABLETS) [Concomitant]
  3. ALLOPURINOL (ALLOPURINOL) (UNKNOWN) [Concomitant]
  4. INCB018424 (OTHER THERAPEUTIC PRODUCTS) (UNKNOWN) [Concomitant]
  5. TRAMADOL (TRAMADOL) (TABLETS) [Concomitant]
  6. TRIAMCINALONE ACETONR (TRIAMCINOLONE ACETONE) (OINTMENT) [Concomitant]
  7. ZYRTEC (CERTIRIZINE HYDROCHLORIDE) (OINTMENT) [Concomitant]

REACTIONS (4)
  - Haemoglobin decreased [None]
  - Red blood cell count decreased [None]
  - Muscle spasms [None]
  - White blood cell count increased [None]
